FAERS Safety Report 4494619-X (Version None)
Quarter: 2004Q4

REPORT INFORMATION
  Report Type: 
  Country: None (occurrence: None)
  Receive Date: 20041103
  Receipt Date: 20041021
  Transmission Date: 20050328
  Serious: Yes (Other)
  Sender: FDA-Public Use
  Company Number: 2004082912

PATIENT
  Sex: Male

DRUGS (5)
  1. GABAPENTIN [Suspect]
     Indication: MOOD ALTERED
     Dosage: (100 MG), ORAL
     Route: 048
     Dates: start: 20040606, end: 20040812
  2. RANITIDINE HCL [Suspect]
     Indication: HYPERCHLORHYDRIA
     Dosage: 150 MG (150 MG, 1 IN 1 D)
     Dates: start: 20030424, end: 20040812
  3. CLOZAPINE [Suspect]
     Indication: SCHIZOPHRENIA
     Dosage: (162.5 MG), ORAL
     Route: 048
     Dates: start: 20020501, end: 20040812
  4. LAMOTRIGINE [Suspect]
     Indication: MOOD ALTERED
     Dosage: ORAL
     Route: 048
     Dates: start: 20040706, end: 20040812
  5. RISPERDAL [Suspect]
     Indication: SCHIZOPHRENIA
     Dosage: (100 MG, 1 IN 1 D), ORAL
     Route: 048
     Dates: start: 20040722, end: 20040812

REACTIONS (3)
  - HYPERCHLORHYDRIA [None]
  - MOOD ALTERED [None]
  - NEUTROPENIA [None]
